FAERS Safety Report 5801800-3 (Version None)
Quarter: 2008Q3

REPORT INFORMATION
  Report Type: 
  Country: None (occurrence: None)
  Receive Date: 20080702
  Receipt Date: 20080702
  Transmission Date: 20090109
  Serious: Yes (Hospitalization)
  Sender: FDA-Public Use
  Company Number: None

PATIENT
  Age: 53 Year

DRUGS (1)
  1. AMLODIPINE [Suspect]
     Indication: CARDIAC FAILURE CONGESTIVE
     Dosage: 10 MG EVERY DAY PO
     Route: 048
     Dates: start: 20060317, end: 20080422

REACTIONS (3)
  - DYSPNOEA [None]
  - OEDEMA [None]
  - WEIGHT INCREASED [None]
